FAERS Safety Report 20349361 (Version 1)
Quarter: 2022Q1

REPORT INFORMATION
  Report Type: Spontaneous
  Country: QA (occurrence: QA)
  Receive Date: 20220119
  Receipt Date: 20220119
  Transmission Date: 20220423
  Serious: No
  Sender: FDA-Public Use
  Company Number: QA-MLMSERVICE-20211229-3292011-1

PATIENT
  Age: 4 Decade
  Sex: Female

DRUGS (7)
  1. QUETIAPINE [Suspect]
     Active Substance: QUETIAPINE
     Indication: Mania
     Dosage: 150 MILLIGRAM, BID (DOSE REDUCED FROM 200 MG AT NIGHT)
     Route: 065
  2. QUETIAPINE [Suspect]
     Active Substance: QUETIAPINE
     Indication: Delirium
     Dosage: UNK, RAPIDLY TITRATED
     Route: 065
  3. CEFTRIAXONE [Suspect]
     Active Substance: CEFTRIAXONE
     Indication: COVID-19 pneumonia
     Dosage: UNK, (PARENTERAL)
     Route: 065
  4. OXYGEN [Suspect]
     Active Substance: OXYGEN
     Indication: COVID-19 pneumonia
     Dosage: 2 LITER (VIA A NASAL CANNULA)
     Route: 045
  5. DEXAMETHASONE [Suspect]
     Active Substance: DEXAMETHASONE
     Indication: COVID-19 pneumonia
     Dosage: UNK, (PARENTERAL)
     Route: 065
  6. REMDESIVIR [Suspect]
     Active Substance: REMDESIVIR
     Indication: COVID-19 pneumonia
     Dosage: UNK, (PARENTERAL)
     Route: 065
  7. ENOXAPARIN [Concomitant]
     Active Substance: ENOXAPARIN
     Indication: Thrombosis prophylaxis
     Dosage: UNK, (PARENTERAL)
     Route: 065

REACTIONS (2)
  - Sedation [Unknown]
  - Off label use [Unknown]
